FAERS Safety Report 10926941 (Version 1)
Quarter: 2015Q1

REPORT INFORMATION
  Report Type: Spontaneous
  Country: US (occurrence: None)
  Receive Date: 20150212
  Receipt Date: 20150212
  Transmission Date: 20150721
  Serious: No
  Sender: FDA-Public Use
  Company Number: TPA2011A07688

PATIENT
  Age: 68 Year
  Sex: Male
  Weight: 99.79 kg

DRUGS (9)
  1. ULORIC [Suspect]
     Active Substance: FEBUXOSTAT
     Indication: GOUT
     Dosage: 1 IN 1 D
     Route: 048
     Dates: start: 20111026, end: 20111029
  2. CETIRIZINE [Concomitant]
     Active Substance: CETIRIZINE HYDROCHLORIDE
  3. PLAVIX [Concomitant]
     Active Substance: CLOPIDOGREL BISULFATE
  4. ASPIRIN (ACETYLSALICYLIC ACID) [Concomitant]
     Active Substance: ASPIRIN
  5. ISOSORBIDE [Concomitant]
     Active Substance: ISOSORBIDE
  6. CARVEDILOL. [Concomitant]
     Active Substance: CARVEDILOL
  7. THYROID (THYROID THERAPY) [Concomitant]
  8. SIMVASTATIN. [Concomitant]
     Active Substance: SIMVASTATIN
  9. PREVACID OTC (LANSOPRAZOLE) [Concomitant]

REACTIONS (2)
  - Thermal burn [None]
  - Swelling face [None]

NARRATIVE: CASE EVENT DATE: 20111029
